FAERS Safety Report 12655651 (Version 1)
Quarter: 2016Q3

REPORT INFORMATION
  Report Type: Spontaneous
  Country: US (occurrence: US)
  Receive Date: 20160816
  Receipt Date: 20160816
  Transmission Date: 20161109
  Serious: No
  Sender: FDA-Public Use
  Company Number: US-009507513-1607USA007987

PATIENT
  Age: 69 Year
  Sex: Female

DRUGS (4)
  1. ALENDRONATE SODIUM. [Suspect]
     Active Substance: ALENDRONATE SODIUM
     Indication: OSTEOARTHRITIS
     Dosage: 1 DOSE,  ONCE
     Route: 048
     Dates: start: 20160612, end: 20160711
  2. SPIRONOLACT [Concomitant]
     Indication: FLUID RETENTION
  3. FOSAMAX [Suspect]
     Active Substance: ALENDRONATE SODIUM
  4. TRAMADOL HYDROCHLORIDE. [Concomitant]
     Active Substance: TRAMADOL HYDROCHLORIDE
     Indication: ARTHRITIS

REACTIONS (2)
  - Pain [Unknown]
  - Drug dispensing error [Unknown]

NARRATIVE: CASE EVENT DATE: 20160612
